FAERS Safety Report 24455795 (Version 2)
Quarter: 2024Q4

REPORT INFORMATION
  Report Type: Report from Study
  Country: US (occurrence: US)
  Receive Date: 20241017
  Receipt Date: 20241018
  Transmission Date: 20250114
  Serious: No
  Sender: ROCHE
  Company Number: US-ROCHE-3486590

PATIENT
  Age: 66 Year
  Sex: Female

DRUGS (2)
  1. RITUXAN [Suspect]
     Active Substance: RITUXIMAB
     Indication: Hypertensive nephropathy
     Dosage: ANTICIPATED DATE OF TREATMENT REPORTED ON 12/JAN/2023.? FREQUENCY TEXT:DAY1 AND DAY 15
     Route: 042
  2. BENADRYL [Concomitant]
     Active Substance: DIPHENHYDRAMINE HYDROCHLORIDE

REACTIONS (3)
  - Scar [Recovered/Resolved with Sequelae]
  - Burns second degree [Recovered/Resolved]
  - Off label use [Unknown]
